FAERS Safety Report 14377313 (Version 1)
Quarter: 2018Q1

REPORT INFORMATION
  Report Type: Spontaneous
  Country: US (occurrence: US)
  Receive Date: 20180111
  Receipt Date: 20180111
  Transmission Date: 20180509
  Serious: Yes (Other)
  Sender: FDA-Public Use
  Company Number: None

PATIENT
  Age: 74 Year
  Sex: Male
  Weight: 95 kg

DRUGS (1)
  1. EFUDEX [Suspect]
     Active Substance: FLUOROURACIL
     Indication: SKIN CANCER
     Dosage: EFUDEX DILY TOPICALLY FACE
     Route: 061
     Dates: start: 20171101, end: 20171114

REACTIONS (1)
  - Pharyngeal ulceration [None]

NARRATIVE: CASE EVENT DATE: 20171115
